FAERS Safety Report 8869746 (Version 1)
Quarter: 2012Q4

REPORT INFORMATION
  Report Type: 
  Country: US (occurrence: US)
  Receive Date: 20121023
  Receipt Date: 20121023
  Transmission Date: 20130627
  Serious: No
  Sender: FDA-Public Use
  Company Number: US-AMGEN-USASP2012029228

PATIENT
  Age: 59 Year
  Sex: Female
  Weight: 87.53 kg

DRUGS (11)
  1. ENBREL [Suspect]
     Indication: RHEUMATOID ARTHRITIS
     Dosage: 50 mg, qwk
     Dates: start: 20120430
  2. RAMIPRIL [Concomitant]
     Dosage: UNK mg, UNK
  3. TRAMADOL [Concomitant]
     Dosage: UNK mg, UNK
  4. ARAVA [Concomitant]
     Dosage: 20 mg, qd
  5. GLYBURIDE [Concomitant]
     Dosage: UNK mg, UNK
  6. FOLIC ACID [Concomitant]
     Dosage: UNK mg, UNK
  7. RANITIDINE [Concomitant]
     Dosage: 150 mg, qd
  8. VITAMIN D /00107901/ [Concomitant]
     Dosage: UNK
  9. CALCIUM [Concomitant]
     Dosage: UNK
  10. PREDNISONE [Concomitant]
     Dosage: 5 mg, qd
  11. CITRACAL + D                       /01438101/ [Concomitant]
     Dosage: 1000 mg, bid

REACTIONS (2)
  - Hip fracture [Not Recovered/Not Resolved]
  - Joint swelling [Unknown]
